FAERS Safety Report 14973268 (Version 1)
Quarter: 2018Q2

REPORT INFORMATION
  Report Type: Spontaneous
  Country: NL (occurrence: NL)
  Receive Date: 20180605
  Receipt Date: 20180605
  Transmission Date: 20180711
  Serious: Yes (Death, Other)
  Sender: FDA-Public Use
  Company Number: PHHY2018NL013869

PATIENT
  Age: 84 Year
  Sex: Male

DRUGS (1)
  1. PAZOPANIB [Suspect]
     Active Substance: PAZOPANIB
     Indication: METASTATIC RENAL CELL CARCINOMA
     Route: 065

REACTIONS (8)
  - Malignant neoplasm progression [Fatal]
  - Malignant sweat gland neoplasm [Recovering/Resolving]
  - Metastatic renal cell carcinoma [Fatal]
  - Ulcer [Unknown]
  - Erythema [Unknown]
  - Dermatitis [Unknown]
  - Wound haemorrhage [Recovered/Resolved]
  - Impaired healing [Recovered/Resolved]
